FAERS Safety Report 6408587-4 (Version None)
Quarter: 2009Q4

REPORT INFORMATION
  Report Type: 
  Country: None (occurrence: None)
  Receive Date: 20091021
  Receipt Date: 20091012
  Transmission Date: 20100525
  Serious: Yes (Other)
  Sender: FDA-Public Use
  Company Number: US-JNJFOC-20091004197

PATIENT
  Sex: Female

DRUGS (23)
  1. REMICADE [Suspect]
     Route: 042
     Dates: start: 20090901, end: 20091009
  2. REMICADE [Suspect]
     Route: 042
     Dates: start: 20090901, end: 20091009
  3. REMICADE [Suspect]
     Indication: CROHN'S DISEASE
     Dosage: INDUCTION DOSE; ^STOPPED AND RESUMED FOLLOWING DAY^
     Route: 042
     Dates: start: 20090901, end: 20091009
  4. FENTANYL TRANSDERMAL SYSTEM [Concomitant]
  5. HYDROCHLOROTHIAZIDE [Concomitant]
  6. PENTASA [Concomitant]
  7. NYSTATIN [Concomitant]
     Route: 048
  8. PREDNISONE [Concomitant]
  9. TRAZODONE [Concomitant]
  10. ENALAPRIL MALEATE [Concomitant]
  11. PHENERGAN HCL [Concomitant]
  12. PROPOXYPHENE HCL CAP [Concomitant]
  13. INDERAL LA [Concomitant]
  14. NORVASC [Concomitant]
  15. ESGIC [Concomitant]
  16. FOLIC ACID [Concomitant]
  17. UROCIT-K [Concomitant]
  18. CLONIDINE [Concomitant]
  19. PROTONIX [Concomitant]
  20. VITAMIN B-12 [Concomitant]
  21. BENADRYL [Concomitant]
     Indication: PREMEDICATION
     Route: 042
  22. SOLU-MEDROL [Concomitant]
     Indication: PREMEDICATION
     Route: 042
  23. APAP TAB [Concomitant]
     Indication: PREMEDICATION
     Route: 042

REACTIONS (8)
  - CHEST PAIN [None]
  - ELECTROCARDIOGRAM ST SEGMENT DEPRESSION [None]
  - INFUSION RELATED REACTION [None]
  - NAUSEA [None]
  - PRURITUS [None]
  - RASH [None]
  - URTICARIA [None]
  - VOMITING [None]
